FAERS Safety Report 13780150 (Version 1)
Quarter: 2017Q3

REPORT INFORMATION
  Report Type: Spontaneous
  Country: FR (occurrence: FR)
  Receive Date: 20170724
  Receipt Date: 20170724
  Transmission Date: 20171127
  Serious: Yes (Other)
  Sender: FDA-Public Use
  Company Number: FR-ROCHE-1966696

PATIENT
  Age: 38 Year
  Sex: Female

DRUGS (3)
  1. ZELBORAF [Suspect]
     Active Substance: VEMURAFENIB
     Indication: MALIGNANT MELANOMA
     Route: 048
     Dates: start: 20160511
  2. COTELLIC [Suspect]
     Active Substance: COBIMETINIB
     Dosage: 2/3 OF THE INITIAL DOSE
     Route: 048
     Dates: start: 201606
  3. COTELLIC [Suspect]
     Active Substance: COBIMETINIB
     Indication: MALIGNANT MELANOMA
     Route: 048
     Dates: start: 20160511, end: 20160517

REACTIONS (1)
  - Detachment of retinal pigment epithelium [Recovered/Resolved]

NARRATIVE: CASE EVENT DATE: 20160517
